FAERS Safety Report 21675826 (Version 1)
Quarter: 2022Q4

REPORT INFORMATION
  Report Type: Spontaneous
  Country: IT (occurrence: IT)
  Receive Date: 20221202
  Receipt Date: 20221202
  Transmission Date: 20230112
  Serious: Yes (Other)
  Sender: FDA-Public Use
  Company Number: None

PATIENT
  Age: 64 Year
  Sex: Female

DRUGS (2)
  1. EPIRUBICIN HYDROCHLORIDE [Suspect]
     Active Substance: EPIRUBICIN HYDROCHLORIDE
     Indication: Sarcoma
     Dosage: UNIT DOSE :   50 MG, DURATION : 2 DAYS
     Dates: start: 20220824, end: 20220826
  2. DACARBAZINE [Suspect]
     Active Substance: DACARBAZINE
     Indication: Sarcoma
     Dosage: UNIT DOSE :   520 MG, DURATION : 2 DAYS
     Dates: start: 20220824, end: 20220826

REACTIONS (1)
  - Anaemia [Recovering/Resolving]

NARRATIVE: CASE EVENT DATE: 20220912
